FAERS Safety Report 10034296 (Version 1)
Quarter: 2014Q1

REPORT INFORMATION
  Report Type: Spontaneous
  Country: US (occurrence: None)
  Receive Date: 20140324
  Receipt Date: 20140324
  Transmission Date: 20141002
  Serious: Yes (Other)
  Sender: FDA-Public Use
  Company Number: None

PATIENT
  Age: 69 Year
  Sex: Male
  Weight: 124.74 kg

DRUGS (2)
  1. CYMBALTA [Suspect]
     Indication: POST-TRAUMATIC STRESS DISORDER
     Route: 048
     Dates: start: 20130401, end: 20140212
  2. CYMBALTA [Suspect]
     Indication: DEPRESSION
     Route: 048
     Dates: start: 20130401, end: 20140212

REACTIONS (11)
  - Rash [None]
  - Constipation [None]
  - Abdominal pain [None]
  - Dry mouth [None]
  - Confusional state [None]
  - Nausea [None]
  - Hallucination [None]
  - Hypoaesthesia [None]
  - Balance disorder [None]
  - Photophobia [None]
  - Ulcer [None]
